FAERS Safety Report 4331677-7 (Version None)
Quarter: 2004Q1

REPORT INFORMATION
  Report Type: 
  Country: None (occurrence: None)
  Receive Date: 20040329
  Receipt Date: 20031023
  Transmission Date: 20041129
  Serious: Yes (Other)
  Sender: FDA-Public Use
  Company Number: CAP02000303

PATIENT
  Age: 42 Year
  Sex: Female
  Weight: 74.8 kg

DRUGS (9)
  1. ACTONEL [Suspect]
     Indication: OSTEOPENIA
     Dosage: 30 MG ONCE DAILY, ORAL
     Route: 048
     Dates: start: 20011001, end: 20020601
  2. PROZAC [Concomitant]
  3. CYCLOMEN (DANAZOL) [Concomitant]
  4. METHOTREXATE [Concomitant]
  5. FOLIC ACID [Concomitant]
  6. CELEBREX [Concomitant]
  7. DANAZOL [Concomitant]
  8. CALCIUM WITH VITAMIN D (CALCIUM SODIUM LACTATE, CALCIUM PHOSPHATE) [Concomitant]
  9. CORTISONE (CORTISONE) [Concomitant]

REACTIONS (25)
  - ARTHRALGIA [None]
  - ATROPHY [None]
  - BACK PAIN [None]
  - BONE DISORDER [None]
  - BONE PAIN [None]
  - CHEST PAIN [None]
  - CONNECTIVE TISSUE DISORDER [None]
  - CYANOSIS [None]
  - INFLUENZA LIKE ILLNESS [None]
  - INJECTION SITE PAIN [None]
  - JOINT SWELLING [None]
  - LIGAMENT INJURY [None]
  - MEDICATION ERROR [None]
  - MUSCLE CRAMP [None]
  - MUSCULAR WEAKNESS [None]
  - OEDEMA PERIPHERAL [None]
  - PAIN [None]
  - PAIN IN EXTREMITY [None]
  - RHEUMATOID ARTHRITIS [None]
  - SENSORY DISTURBANCE [None]
  - SKELETAL INJURY [None]
  - SKIN LESION [None]
  - SLEEP DISORDER [None]
  - SYNOVIAL FLUID RED BLOOD CELLS POSITIVE [None]
  - TENDONITIS [None]
